FAERS Safety Report 4418059-4 (Version None)
Quarter: 2004Q3

REPORT INFORMATION
  Report Type: 
  Country: None (occurrence: None)
  Receive Date: 20040803
  Receipt Date: 20040720
  Transmission Date: 20050211
  Serious: Yes (Other)
  Sender: FDA-Public Use
  Company Number: 2004-0007138

PATIENT
  Sex: Male

DRUGS (4)
  1. VIREAD (TENOFOVIR DISOPROXIL FUMARATE) (TABLET) [Suspect]
     Indication: HIV INFECTION
     Dosage: 300 MG, ORAL
     Route: 048
  2. KALETRA [Concomitant]
  3. EPIVIR [Concomitant]
  4. COMTRIM (BACTRIM) [Concomitant]

REACTIONS (1)
  - APLASIA PURE RED CELL [None]
